FAERS Safety Report 8027676-4 (Version None)
Quarter: 2012Q1

REPORT INFORMATION
  Report Type: 
  Country: None (occurrence: None)
  Receive Date: 20120106
  Receipt Date: 20120104
  Transmission Date: 20120608
  Serious: Yes (Hospitalization)
  Sender: FDA-Public Use
  Company Number: DE-SANOFI-AVENTIS-2011SA082546

PATIENT
  Age: 75 Year
  Sex: Male
  Weight: 110 kg

DRUGS (14)
  1. CABAZITAXEL [Suspect]
     Indication: PROSTATE CANCER
     Dates: start: 20111208, end: 20111208
  2. TAMSULOSIN HCL [Concomitant]
     Route: 048
     Dates: start: 20111117
  3. AMITRIPTYLINE HCL [Concomitant]
     Dates: start: 20111117
  4. RAMIPRIL [Concomitant]
  5. TRAMADOL HCL [Concomitant]
     Route: 048
     Dates: start: 20111117
  6. RAMIPRIL [Concomitant]
     Dates: start: 19970101
  7. DIPYRONE TAB [Concomitant]
     Route: 048
     Dates: start: 20111117
  8. BISOPROLOL [Concomitant]
  9. TORSEMIDE [Concomitant]
  10. NOVALGIN [Concomitant]
  11. DICLOFENAC [Concomitant]
     Route: 048
     Dates: start: 20111117
  12. ISOSORBIDE DINITRATE [Concomitant]
  13. ZOMETA [Concomitant]
     Route: 048
     Dates: start: 20090801
  14. PREDNISOLONE [Suspect]
     Indication: PROSTATE CANCER
     Dates: start: 20111208, end: 20111208

REACTIONS (7)
  - NAUSEA [None]
  - VOMITING [None]
  - DIARRHOEA [None]
  - WRONG DRUG ADMINISTERED [None]
  - ACCIDENTAL OVERDOSE [None]
  - FEBRILE NEUTROPENIA [None]
  - WHITE BLOOD CELL COUNT DECREASED [None]
